FAERS Safety Report 7058598-3 (Version None)
Quarter: 2010Q4

REPORT INFORMATION
  Report Type: 
  Country: None (occurrence: None)
  Receive Date: 20101022
  Receipt Date: 20101015
  Transmission Date: 20110411
  Serious: Yes (Other)
  Sender: FDA-Public Use
  Company Number: A0887948A

PATIENT
  Sex: Male

DRUGS (1)
  1. ADVAIR DISKUS 100/50 [Suspect]
     Indication: PRODUCT USED FOR UNKNOWN INDICATION
     Dates: start: 20081015

REACTIONS (3)
  - CORRECTIVE LENS USER [None]
  - VISION BLURRED [None]
  - VISUAL ACUITY REDUCED [None]
